FAERS Safety Report 7220599-X (Version None)
Quarter: 2011Q1

REPORT INFORMATION
  Report Type: 
  Country: None (occurrence: None)
  Receive Date: 20110111
  Receipt Date: 20110106
  Transmission Date: 20110831
  Serious: Yes (Disabling)
  Sender: FDA-Public Use
  Company Number: GB-PFIZER INC-2011003608

PATIENT
  Age: 53 Year
  Sex: Male
  Weight: 109.2 kg

DRUGS (9)
  1. LEVOTHYROXINE SODIUM [Concomitant]
     Indication: BLOOD THYROID STIMULATING HORMONE DECREASED
     Dosage: 150 UG, 1X/DAY
     Route: 048
     Dates: start: 20081216
  2. TESTOSTERONE [Concomitant]
     Indication: BLOOD FOLLICLE STIMULATING HORMONE DECREASED
  3. LEVOTHYROXINE SODIUM [Concomitant]
     Indication: PRIMARY HYPOTHYROIDISM
  4. SOMATROPIN [Suspect]
     Indication: HYPOPITUITARISM
     Dosage: 0.35 MG, 1X/DAY, 7 INJECTIONS/WEEK
     Dates: start: 20100628, end: 20110103
  5. TESTOSTERONE [Concomitant]
     Indication: BLOOD LUTEINISING HORMONE DECREASED
     Dosage: 50 MG, 1X/DAY
     Dates: start: 20081215
  6. NAPROXEN [Concomitant]
     Indication: GOUTY ARTHRITIS
     Dosage: 500 MG, AS NEEDED
     Route: 048
     Dates: start: 20080701
  7. TESTOSTERONE [Concomitant]
     Indication: HYPOGONADISM MALE
  8. HYDROCORTISONE [Concomitant]
     Indication: BLOOD CORTICOTROPHIN DECREASED
     Dosage: 15 MG, 1X/DAY
     Route: 048
     Dates: start: 20080828
  9. ALLOPURINOL [Concomitant]
     Indication: GOUTY ARTHRITIS
     Dosage: 300 MG, 1X/DAY
     Dates: start: 20080701

REACTIONS (1)
  - PITUITARY TUMOUR BENIGN [None]
